FAERS Safety Report 22219491 (Version 1)
Quarter: 2023Q2

REPORT INFORMATION
  Report Type: Spontaneous
  Country: US (occurrence: None)
  Receive Date: 20230414
  Receipt Date: 20230414
  Transmission Date: 20230721
  Serious: Yes (Death)
  Sender: FDA-Public Use
  Company Number: None

PATIENT
  Age: 44 Year
  Sex: Male
  Weight: 114 kg

DRUGS (1)
  1. MIRCERA [Suspect]
     Active Substance: METHOXY POLYETHYLENE GLYCOL-EPOETIN BETA
     Indication: Anaemia
     Route: 042
     Dates: start: 20230407, end: 20230407

REACTIONS (6)
  - Malaise [None]
  - Unresponsive to stimuli [None]
  - Drug ineffective [None]
  - Heart rate increased [None]
  - Hypersensitivity [None]
  - Immediate post-injection reaction [None]

NARRATIVE: CASE EVENT DATE: 20230407
